FAERS Safety Report 20565519 (Version 1)
Quarter: 2022Q1

REPORT INFORMATION
  Report Type: Spontaneous
  Country: CA (occurrence: CA)
  Receive Date: 20220308
  Receipt Date: 20220308
  Transmission Date: 20220424
  Serious: Yes (Other)
  Sender: FDA-Public Use
  Company Number: None

PATIENT
  Age: 57 Year
  Sex: Male
  Weight: 62 kg

DRUGS (4)
  1. OXALIPLATIN [Suspect]
     Active Substance: OXALIPLATIN
     Indication: Chemotherapy
     Dosage: STRENGTH: 50MG/10ML +AMP; 100MG/20ML SINGLE USE VIALS, 1 EVERY 2WEEKS
     Route: 042
  2. LEUCOVORIN CALCIUM [Suspect]
     Active Substance: LEUCOVORIN CALCIUM
     Indication: Chemotherapy
     Dosage: INJECTION INTRAMUSCULAR IV, STRENGTH: 10MG/ML, 1 EVERY 2 WEEKS
     Route: 042
  3. DEXAMETHASONE [Concomitant]
     Active Substance: DEXAMETHASONE
  4. GRANISETRON [Concomitant]
     Active Substance: GRANISETRON

REACTIONS (5)
  - Hypotension [Unknown]
  - Oxygen saturation decreased [Unknown]
  - Rash [Unknown]
  - Tachycardia [Unknown]
  - Wheezing [Unknown]
